FAERS Safety Report 16467939 (Version 2)
Quarter: 2019Q3

REPORT INFORMATION
  Report Type: Spontaneous
  Country: US (occurrence: US)
  Receive Date: 20190624
  Receipt Date: 20190830
  Transmission Date: 20191004
  Serious: Yes (Hospitalization, Disabling, Other)
  Sender: FDA-Public Use
  Company Number: US-009507513-1906USA008387

PATIENT
  Age: 58 Year
  Sex: Female
  Weight: 154 kg

DRUGS (9)
  1. FOSAMAX [Concomitant]
     Active Substance: ALENDRONATE SODIUM
     Indication: OSTEOPENIA
     Dosage: 70 MILLIGRAM, QW
     Route: 048
     Dates: start: 2011, end: 2015
  2. ANTUSIVON [Concomitant]
     Indication: DIABETES MELLITUS
     Dosage: TOTAL DAILY DOSAGE: 10-20 UNIT
     Route: 058
     Dates: start: 2013, end: 2014
  3. JANUMET [Suspect]
     Active Substance: METFORMIN HYDROCHLORIDE\SITAGLIPTIN PHOSPHATE
     Indication: DIABETES MELLITUS
     Dosage: 2 TABLETS DAILY
     Route: 048
     Dates: start: 20130914, end: 201502
  4. MAXZIDE [Concomitant]
     Active Substance: HYDROCHLOROTHIAZIDE\TRIAMTERENE
     Indication: HYPERTENSION
     Dosage: TOTAL DAILY DOSAGE: 37.5/ 25  MILLIGRAM
     Route: 048
     Dates: start: 2011, end: 2013
  5. MAXZIDE [Concomitant]
     Active Substance: HYDROCHLOROTHIAZIDE\TRIAMTERENE
     Dosage: TOTAL DAILY DOSAGE: 37.5/ 25  MILLIGRAM
     Route: 048
     Dates: start: 2014, end: 2015
  6. LISINOPRIL. [Concomitant]
     Active Substance: LISINOPRIL
     Indication: HYPERTENSION
     Dosage: TOTAL DAILY DOSAGE: 10MG
     Route: 048
     Dates: start: 2011, end: 2014
  7. FENOFIBRATE. [Concomitant]
     Active Substance: FENOFIBRATE
     Indication: HIGH DENSITY LIPOPROTEIN
     Dosage: START DATE PRIOR TO 2011, TOTAL DAILY DOSAGE: 160MG
     Route: 048
  8. SYNTHROID [Concomitant]
     Active Substance: LEVOTHYROXINE SODIUM
     Indication: HYPOTHYROIDISM
     Dosage: STARTED PRIOR TO 2011, DAILY DOSAGE FORM: 112MCG
     Route: 048
  9. SIMVASTATIN. [Concomitant]
     Active Substance: SIMVASTATIN
     Indication: HIGH DENSITY LIPOPROTEIN
     Dosage: TOTAL DAILY DOSAGE: 5 MG
     Route: 048
     Dates: start: 2013

REACTIONS (4)
  - Pancreatic fistula [Not Recovered/Not Resolved]
  - Pancreatitis acute [Recovered/Resolved]
  - Pancreatitis chronic [Not Recovered/Not Resolved]
  - Pancreatic pseudocyst [Not Recovered/Not Resolved]

NARRATIVE: CASE EVENT DATE: 201412
